FAERS Safety Report 18233110 (Version 4)
Quarter: 2025Q4

REPORT INFORMATION
  Report Type: Spontaneous
  Country: US (occurrence: US)
  Receive Date: 20200904
  Receipt Date: 20251121
  Transmission Date: 20260118
  Serious: Yes (Hospitalization, Other)
  Sender: NOVO NORDISK
  Company Number: US-NOVOPROD-750002

PATIENT
  Age: 86 Year
  Sex: Female

DRUGS (1)
  1. LEVEMIR [Suspect]
     Active Substance: INSULIN DETEMIR
     Indication: Type 2 diabetes mellitus
     Dosage: 24 IU, QD
     Route: 058

REACTIONS (9)
  - Spinal cord compression [Recovering/Resolving]
  - Influenza [Unknown]
  - Thrombosis [Unknown]
  - Neuropathy peripheral [Recovering/Resolving]
  - Abdominal distension [Unknown]
  - Balance disorder [Unknown]
  - Coronavirus infection [Unknown]
  - Flatulence [Unknown]
  - Urinary incontinence [Unknown]

NARRATIVE: CASE EVENT DATE: 20110101
